FAERS Safety Report 9162414 (Version 1)
Quarter: 2013Q1

REPORT INFORMATION
  Report Type: Spontaneous
  Country: GB (occurrence: None)
  Receive Date: 20130221
  Receipt Date: 20130221
  Transmission Date: 20140127
  Serious: Yes (Other)
  Sender: FDA-Public Use
  Company Number: CA13-0074

PATIENT
  Age: 32 Year
  Sex: Female

DRUGS (2)
  1. ENOXAPARIN [Suspect]
     Indication: FACTOR V LEIDEN MUTATION
     Dosage: 40MG, ONCE/DAY, SUBCUT.
     Route: 058
  2. ASPIRIN 75 MG [Concomitant]

REACTIONS (4)
  - Caesarean section [None]
  - Placenta accreta [None]
  - Haemorrhage in pregnancy [None]
  - Exposure during pregnancy [None]
